FAERS Safety Report 9030440 (Version 10)
Quarter: 2017Q3

REPORT INFORMATION
  Report Type: Report from Study
  Country: CA (occurrence: CA)
  Receive Date: 20130122
  Receipt Date: 20170920
  Transmission Date: 20171128
  Serious: Yes (Other)
  Sender: FDA-Public Use
  Company Number: CA-ROCHE-1128777

PATIENT
  Age: 42 Year
  Sex: Female
  Weight: 68 kg

DRUGS (8)
  1. ACTEMRA [Suspect]
     Active Substance: TOCILIZUMAB
     Route: 042
     Dates: start: 20150930
  2. FOLIC ACID. [Concomitant]
     Active Substance: FOLIC ACID
  3. ACTEMRA [Suspect]
     Active Substance: TOCILIZUMAB
     Route: 042
     Dates: start: 20160804
  4. ARAVA [Concomitant]
     Active Substance: LEFLUNOMIDE
  5. METHOTREXATE. [Concomitant]
     Active Substance: METHOTREXATE
  6. ALEVE [Concomitant]
     Active Substance: NAPROXEN SODIUM
  7. ACTEMRA [Suspect]
     Active Substance: TOCILIZUMAB
     Indication: RHEUMATOID ARTHRITIS
     Route: 058
     Dates: start: 20170704, end: 20170824
  8. ACTEMRA [Suspect]
     Active Substance: TOCILIZUMAB
     Indication: RHEUMATOID ARTHRITIS
     Route: 042
     Dates: start: 20120327

REACTIONS (22)
  - Erythema [Not Recovered/Not Resolved]
  - Peripheral swelling [Not Recovered/Not Resolved]
  - Weight decreased [Unknown]
  - Rheumatoid arthritis [Recovering/Resolving]
  - Fall [Unknown]
  - Hypotension [Not Recovered/Not Resolved]
  - Migraine [Not Recovered/Not Resolved]
  - Infusion related reaction [Unknown]
  - Back pain [Not Recovered/Not Resolved]
  - Pain [Not Recovered/Not Resolved]
  - Infection [Unknown]
  - Malaise [Not Recovered/Not Resolved]
  - Weight increased [Not Recovered/Not Resolved]
  - Heart rate decreased [Unknown]
  - Neck pain [Not Recovered/Not Resolved]
  - Fibromyalgia [Not Recovered/Not Resolved]
  - Dizziness [Recovered/Resolved]
  - Sciatica [Unknown]
  - Nasopharyngitis [Unknown]
  - Ligament sprain [Recovering/Resolving]
  - Nasopharyngitis [Not Recovered/Not Resolved]
  - Drug ineffective [Unknown]

NARRATIVE: CASE EVENT DATE: 201206
